FAERS Safety Report 9747577 (Version 1)
Quarter: 2013Q4

REPORT INFORMATION
  Report Type: Spontaneous
  Country: US (occurrence: None)
  Receive Date: 20131211
  Receipt Date: 20131211
  Transmission Date: 20140711
  Serious: Yes (Death, Hospitalization, Other)
  Sender: FDA-Public Use
  Company Number: None

PATIENT
  Age: 55 Year
  Sex: Male
  Weight: 74.84 kg

DRUGS (1)
  1. DECADRON [Suspect]
     Dosage: ONE INJECTION, INTO THE MUSCLE

REACTIONS (8)
  - Heart rate irregular [None]
  - Blood pressure increased [None]
  - Swollen tongue [None]
  - Psychotic disorder [None]
  - Depression [None]
  - Blood sodium decreased [None]
  - Product quality issue [None]
  - Wrong technique in drug usage process [None]
